FAERS Safety Report 18428999 (Version 4)
Quarter: 2021Q3

REPORT INFORMATION
  Report Type: Spontaneous
  Country: US (occurrence: US)
  Receive Date: 20201026
  Receipt Date: 20210903
  Transmission Date: 20211014
  Serious: No
  Sender: FDA-Public Use
  Company Number: US-PFIZER INC-2020411295

PATIENT
  Age: 72 Year
  Sex: Male

DRUGS (2)
  1. BOSULIF [Interacting]
     Active Substance: BOSUTINIB MONOHYDRATE
     Dosage: 100 MG
  2. BOSULIF [Suspect]
     Active Substance: BOSUTINIB MONOHYDRATE
     Dosage: 300 MG

REACTIONS (2)
  - Drug interaction [Unknown]
  - Gastric disorder [Unknown]
